FAERS Safety Report 5085002-7 (Version None)
Quarter: 2006Q3

REPORT INFORMATION
  Report Type: 
  Country: None (occurrence: None)
  Receive Date: 20060815
  Receipt Date: 20060803
  Transmission Date: 20061208
  Serious: Yes (Death)
  Sender: FDA-Public Use
  Company Number: 228315

PATIENT
  Age: 48 Year
  Sex: Male

DRUGS (2)
  1. AVASTIN [Suspect]
     Indication: RENAL CANCER METASTATIC
     Dosage: 855 MG, Q2W, INTRAVENOUS
     Route: 042
     Dates: start: 20060404, end: 20060802
  2. PROLEUKIN [Suspect]
     Indication: RENAL CANCER METASTATIC
     Dosage: 51 MU, Q8H, INTRAVENOUS
     Route: 042
     Dates: start: 20060418, end: 20060802

REACTIONS (10)
  - BLOOD BICARBONATE DECREASED [None]
  - BLOOD PRESSURE DECREASED [None]
  - CARDIOGENIC SHOCK [None]
  - CHEST DISCOMFORT [None]
  - CHEST PAIN [None]
  - CREATINE PHOSPHOKINASE DECREASED [None]
  - ELECTROMECHANICAL DISSOCIATION [None]
  - HEART RATE INCREASED [None]
  - LOSS OF CONSCIOUSNESS [None]
  - RESPIRATORY FAILURE [None]
